FAERS Safety Report 4860505-6 (Version None)
Quarter: 2005Q4

REPORT INFORMATION
  Report Type: 
  Country: None (occurrence: None)
  Receive Date: 20051219
  Receipt Date: 20050914
  Transmission Date: 20060501
  Serious: Yes (Life-Threatening, Other)
  Sender: FDA-Public Use
  Company Number: US-NOVOPROD-246948

PATIENT

DRUGS (1)
  1. NOVOLIN R [Suspect]
     Indication: DIABETES MELLITUS
     Dosage: UNKNOWN

REACTIONS (3)
  - ANGIONEUROTIC OEDEMA [None]
  - PYREXIA [None]
  - URTICARIA [None]
